FAERS Safety Report 22651195 (Version 1)
Quarter: 2023Q2

REPORT INFORMATION
  Report Type: Spontaneous
  Country: US (occurrence: None)
  Receive Date: 20230627
  Receipt Date: 20230627
  Transmission Date: 20230722
  Serious: Yes (Other)
  Sender: FDA-Public Use
  Company Number: None

PATIENT
  Sex: Female

DRUGS (4)
  1. NUCALA [Suspect]
     Active Substance: MEPOLIZUMAB
     Indication: Asthma
     Dosage: FREQUENCY : AS DIRECTED;?
     Route: 058
     Dates: start: 20230512
  2. AMOXICILLIN CAP [Concomitant]
  3. PREDNISONE [Concomitant]
     Active Substance: PREDNISONE
  4. PROVIGIL TAB [Concomitant]

REACTIONS (2)
  - Upper respiratory tract infection [None]
  - Ear pain [None]
